FAERS Safety Report 19156066 (Version 1)
Quarter: 2021Q2

REPORT INFORMATION
  Report Type: Other
  Country: IE (occurrence: IE)
  Receive Date: 20210419
  Receipt Date: 20210419
  Transmission Date: 20210717
  Serious: Yes (Hospitalization)
  Sender: FDA-Public Use
  Company Number: IE-B.BRAUN MEDICAL INC.-2109495

PATIENT
  Age: 2 Day
  Sex: Female

DRUGS (1)
  1. ACETAMINOPHEN. [Suspect]
     Active Substance: ACETAMINOPHEN
     Indication: PATENT DUCTUS ARTERIOSUS

REACTIONS (1)
  - Drug ineffective [None]
